FAERS Safety Report 8756068 (Version 3)
Quarter: 2012Q4

REPORT INFORMATION
  Report Type: 
  Country: US (occurrence: US)
  Receive Date: 20120828
  Receipt Date: 20121106
  Transmission Date: 20130627
  Serious: Yes (Disabling, Other)
  Sender: FDA-Public Use
  Company Number: US-MERCK-1208USA007493

PATIENT

DRUGS (8)
  1. FOSAMAX [Suspect]
     Indication: OSTEOPENIA
     Dosage: 70 mg, UNK
     Route: 048
     Dates: start: 2002, end: 2011
  2. FOSAMAX [Suspect]
     Indication: OSTEOPOROSIS
     Dosage: 40 mg, UNK
     Route: 048
     Dates: start: 20021206, end: 20050714
  3. CORTICOSTEROIDS (UNSPECIFIED) [Concomitant]
     Dosage: UNK
     Dates: start: 1994
  4. BONIVA [Concomitant]
     Indication: OSTEOPOROSIS
  5. BONIVA [Concomitant]
     Indication: OSTEOPENIA
  6. ACTONEL [Concomitant]
     Indication: OSTEOPOROSIS
  7. ACTONEL [Concomitant]
     Indication: OSTEOPENIA
  8. FOSAMAX PLUS D [Suspect]
     Dosage: 70MG /2800IU
     Route: 048
     Dates: start: 20070301, end: 20070720

REACTIONS (11)
  - Femur fracture [Not Recovered/Not Resolved]
  - Joint arthroplasty [Unknown]
  - Hip arthroplasty [Unknown]
  - Hip arthroplasty [Unknown]
  - Dental implantation [Unknown]
  - Vitamin D deficiency [Unknown]
  - Adverse event [Unknown]
  - Blood cholesterol increased [Unknown]
  - Chondropathy [Unknown]
  - Joint dislocation [Unknown]
  - Joint dislocation [Unknown]
